FAERS Safety Report 7059764-3 (Version None)
Quarter: 2010Q4

REPORT INFORMATION
  Report Type: 
  Country: None (occurrence: None)
  Receive Date: 20101025
  Receipt Date: 20101019
  Transmission Date: 20110411
  Serious: Yes (Other)
  Sender: FDA-Public Use
  Company Number: DE-PFIZER INC-2010132239

PATIENT
  Age: 54 Year
  Sex: Female

DRUGS (1)
  1. CLINDAMYCIN HCL [Suspect]
     Indication: GINGIVITIS ULCERATIVE
     Dosage: 600 MG, 1X/DAY
     Route: 048

REACTIONS (2)
  - DYSPHAGIA [None]
  - RASH [None]
